FAERS Safety Report 23124171 (Version 1)
Quarter: 2023Q4

REPORT INFORMATION
  Report Type: Spontaneous
  Country: US (occurrence: None)
  Receive Date: 20231027
  Receipt Date: 20231027
  Transmission Date: 20240110
  Serious: Yes (Life-Threatening, Hospitalization)
  Sender: FDA-Public Use
  Company Number: None

PATIENT
  Age: 49 Year
  Sex: Female
  Weight: 94.05 kg

DRUGS (1)
  1. DOTAREM [Suspect]
     Active Substance: GADOTERATE MEGLUMINE
     Dosage: OTHER FREQUENCY : ONE TIME INJECTION;?
     Route: 040

REACTIONS (5)
  - Dyspnoea [None]
  - Throat irritation [None]
  - Respiratory tract congestion [None]
  - Erythema [None]
  - Contrast media reaction [None]

NARRATIVE: CASE EVENT DATE: 20231027
